FAERS Safety Report 14584226 (Version 1)
Quarter: 2018Q1

REPORT INFORMATION
  Report Type: Spontaneous
  Country: US (occurrence: US)
  Receive Date: 20180228
  Receipt Date: 20180228
  Transmission Date: 20180509
  Serious: No
  Sender: FDA-Public Use
  Company Number: US-IRONWOOD PHARMACEUTICALS, INC.-IRWD2018000062

PATIENT
  Sex: Male

DRUGS (1)
  1. DUZALLO [Suspect]
     Active Substance: ALLOPURINOL\LESINURAD
     Indication: HYPERURICAEMIA
     Dosage: UNK
     Route: 065

REACTIONS (2)
  - Tachycardia [Recovered/Resolved]
  - Feeling jittery [Recovered/Resolved]
